FAERS Safety Report 19606664 (Version 13)
Quarter: 2021Q4

REPORT INFORMATION
  Report Type: Report from Study
  Country: US (occurrence: US)
  Receive Date: 20210725
  Receipt Date: 20211126
  Transmission Date: 20220303
  Serious: Yes (Death, Hospitalization)
  Sender: FDA-Public Use
  Company Number: US-NOVARTISPH-NVSC2021US157827

PATIENT
  Age: 64 Year
  Sex: Male
  Weight: 59.4 kg

DRUGS (7)
  1. TREPROSTINIL [Suspect]
     Active Substance: TREPROSTINIL
     Indication: Pulmonary arterial hypertension
     Dosage: 24 NG/KG/MIN, CONT
     Route: 042
     Dates: start: 20210708
  2. TREPROSTINIL [Suspect]
     Active Substance: TREPROSTINIL
     Dosage: 32 NG/KG/MIN, CONT
     Route: 042
  3. TREPROSTINIL [Suspect]
     Active Substance: TREPROSTINIL
     Dosage: 66 NG/KG/MIN, CONT
     Route: 042
  4. TREPROSTINIL [Suspect]
     Active Substance: TREPROSTINIL
     Dosage: UNK (60 NG/KG/MIN)
     Route: 042
  5. REMODULIN [Suspect]
     Active Substance: TREPROSTINIL
     Indication: Product used for unknown indication
     Dosage: 24 NG/KG/MIN)
     Route: 065
  6. ELIQUIS [Concomitant]
     Active Substance: APIXABAN
     Indication: Product used for unknown indication
     Dosage: UNK
     Route: 065
  7. SILDENAFIL CITRATE [Concomitant]
     Active Substance: SILDENAFIL CITRATE
     Indication: Product used for unknown indication
     Dosage: UNK
     Route: 065

REACTIONS (19)
  - Death [Fatal]
  - Abdominal distension [Unknown]
  - Ascites [Unknown]
  - Oedema peripheral [Unknown]
  - Fluid retention [Unknown]
  - Fatigue [Unknown]
  - Hypotension [Unknown]
  - Hypervolaemia [Unknown]
  - Right ventricular failure [Unknown]
  - Weight abnormal [Unknown]
  - Polyuria [Unknown]
  - Nausea [Unknown]
  - Vomiting [Unknown]
  - Diarrhoea [Unknown]
  - Fear [Unknown]
  - Pulmonary hypertension [Unknown]
  - Cardiac output decreased [Unknown]
  - Pain in jaw [Unknown]
  - Incorrect drug administration rate [Unknown]

NARRATIVE: CASE EVENT DATE: 20210923
